FAERS Safety Report 25179916 (Version 1)
Quarter: 2025Q2

REPORT INFORMATION
  Report Type: Report from Study
  Country: ZA (occurrence: ZA)
  Receive Date: 20250409
  Receipt Date: 20250409
  Transmission Date: 20250717
  Serious: Yes (Other)
  Sender: ALEXION PHARMACEUTICALS
  Company Number: ZA-AstraZeneca-CH-00840689A

PATIENT
  Age: 49 Year

DRUGS (7)
  1. BUDESONIDE\FORMOTEROL [Suspect]
     Active Substance: BUDESONIDE\FORMOTEROL
     Indication: Asthma
  2. CICLESONIDE [Concomitant]
     Active Substance: CICLESONIDE
  3. TELMISARTAN [Concomitant]
     Active Substance: TELMISARTAN
     Indication: Hypertension
  4. CLOBAZAM [Concomitant]
     Active Substance: CLOBAZAM
     Indication: Anxiety
  5. PREDNISONE [Concomitant]
     Active Substance: PREDNISONE
  6. BUDESONIDE [Concomitant]
     Active Substance: BUDESONIDE
     Indication: Rhinitis allergic
  7. ACETYLCYSTEINE [Concomitant]
     Active Substance: ACETYLCYSTEINE

REACTIONS (2)
  - Deafness [Unknown]
  - Headache [Unknown]
